FAERS Safety Report 14233789 (Version 1)
Quarter: 2017Q4

REPORT INFORMATION
  Report Type: Spontaneous
  Country: US (occurrence: None)
  Receive Date: 20171128
  Receipt Date: 20171128
  Transmission Date: 20180321
  Serious: Yes (Hospitalization)
  Sender: FDA-Public Use
  Company Number: None

PATIENT
  Age: 95 Year
  Sex: Female
  Weight: 61.23 kg

DRUGS (1)
  1. IBRANCE [Suspect]
     Active Substance: PALBOCICLIB
     Indication: BREAST CANCER FEMALE
     Route: 048
     Dates: start: 20171102, end: 20171123

REACTIONS (5)
  - Speech disorder [None]
  - Heart rate decreased [None]
  - Dehydration [None]
  - Myocardial necrosis marker increased [None]
  - Seizure [None]

NARRATIVE: CASE EVENT DATE: 20171116
